FAERS Safety Report 7039720-1 (Version None)
Quarter: 2010Q4

REPORT INFORMATION
  Report Type: 
  Country: None (occurrence: None)
  Receive Date: 20101012
  Receipt Date: 20101001
  Transmission Date: 20110411
  Serious: Yes (Life-Threatening)
  Sender: FDA-Public Use
  Company Number: US-JNJFOC-20100807703

PATIENT
  Sex: Male
  Weight: 93.44 kg

DRUGS (8)
  1. REMICADE [Suspect]
     Indication: CROHN'S DISEASE
  2. REMICADE [Suspect]
  3. REMICADE [Suspect]
  4. REMICADE [Suspect]
  5. 6-MERCAPTOPURINE [Concomitant]
     Indication: CROHN'S DISEASE
  6. QUESTRAN [Concomitant]
     Indication: CROHN'S DISEASE
  7. ANTIHISTAMINES [Concomitant]
     Indication: PREMEDICATION
  8. ACETAMINOPHEN [Concomitant]

REACTIONS (1)
  - GALLBLADDER CANCER [None]
